FAERS Safety Report 5762705-X (Version None)
Quarter: 2008Q2

REPORT INFORMATION
  Report Type: 
  Country: None (occurrence: None)
  Receive Date: 20080609
  Receipt Date: 20080528
  Transmission Date: 20081010
  Serious: Yes (Hospitalization)
  Sender: FDA-Public Use
  Company Number: JP-MERCK-0803USA02394

PATIENT
  Age: 67 Year
  Sex: Male

DRUGS (12)
  1. PEPCID RPD [Suspect]
     Route: 048
     Dates: start: 20071217, end: 20080303
  2. LOXONIN [Suspect]
     Route: 048
     Dates: end: 20080303
  3. DEPAS [Suspect]
     Route: 048
     Dates: end: 20080303
  4. SIMVASTATIN [Suspect]
     Indication: HYPERLIPIDAEMIA
     Route: 048
     Dates: end: 20080303
  5. GASMOTIN [Suspect]
     Indication: GASTRIC ULCER
     Route: 048
     Dates: start: 20071220, end: 20080303
  6. RABEPRAZOLE SODIUM [Suspect]
     Indication: GASTRIC ULCER
     Route: 048
     Dates: start: 20080104, end: 20080303
  7. KELNAC [Concomitant]
     Route: 048
     Dates: end: 20080303
  8. MYONAL [Concomitant]
     Route: 048
     Dates: end: 20080303
  9. RHYTHMY [Concomitant]
     Indication: INSOMNIA
     Route: 048
     Dates: end: 20080303
  10. CERCINE [Concomitant]
     Indication: INSOMNIA
     Route: 048
     Dates: end: 20080303
  11. STROCAIN (OXETHAZAINE HYDROCHLORIDE) [Concomitant]
     Indication: GASTRIC ULCER
     Route: 048
     Dates: start: 20071220, end: 20080303
  12. GASTROM [Concomitant]
     Indication: GASTRIC ULCER
     Route: 048
     Dates: start: 20080104, end: 20080303

REACTIONS (1)
  - INTERSTITIAL LUNG DISEASE [None]
